FAERS Safety Report 11450197 (Version 1)
Quarter: 2015Q3

REPORT INFORMATION
  Report Type: Spontaneous
  Country: US (occurrence: US)
  Receive Date: 20150903
  Receipt Date: 20150903
  Transmission Date: 20151125
  Serious: No
  Sender: FDA-Public Use
  Company Number: US-ROCHE-1082873

PATIENT
  Age: 60 Year
  Sex: Male

DRUGS (1)
  1. PEGASYS [Suspect]
     Active Substance: PEGINTERFERON ALFA-2A
     Indication: HEPATITIS C
     Route: 065

REACTIONS (15)
  - Fatigue [Unknown]
  - Paranoia [Unknown]
  - Aggression [Unknown]
  - Abdominal pain upper [Unknown]
  - Depression [Unknown]
  - Adverse reaction [Unknown]
  - Anaemia [Unknown]
  - Headache [Unknown]
  - Splenomegaly [Unknown]
  - Mood swings [Unknown]
  - Diarrhoea haemorrhagic [Unknown]
  - Vomiting [Unknown]
  - Unevaluable event [Unknown]
  - Schizophrenia [Unknown]
  - Abnormal behaviour [Unknown]
